FAERS Safety Report 17726612 (Version 4)
Quarter: 2020Q3

REPORT INFORMATION
  Report Type: Spontaneous
  Country: US (occurrence: US)
  Receive Date: 20200430
  Receipt Date: 20200917
  Transmission Date: 20201102
  Serious: No
  Sender: FDA-Public Use
  Company Number: US-BIOGEN-2020BI00868662

PATIENT
  Age: 46 Year
  Sex: Female

DRUGS (3)
  1. TECFIDERA [Suspect]
     Active Substance: DIMETHYL FUMARATE
     Indication: MULTIPLE SCLEROSIS
     Dosage: ONE 120 MG CAP DAILY ON WEEK ONE, THEN TAKE ONE 240 MG CAP DAILY ON WEEK 2, THEN TAKE ONE 120 MG ...
     Route: 048
     Dates: start: 20200417, end: 20200423
  2. TECFIDERA [Suspect]
     Active Substance: DIMETHYL FUMARATE
     Dosage: MAINTENANCE DOSE
     Route: 065
     Dates: start: 20200424
  3. TECFIDERA [Suspect]
     Active Substance: DIMETHYL FUMARATE
     Route: 048
     Dates: start: 202004

REACTIONS (5)
  - Disturbance in attention [Unknown]
  - Malaise [Unknown]
  - Nausea [Unknown]
  - Flushing [Not Recovered/Not Resolved]
  - Fatigue [Unknown]

NARRATIVE: CASE EVENT DATE: 202004
